FAERS Safety Report 15735093 (Version 1)
Quarter: 2018Q4

REPORT INFORMATION
  Report Type: Report from Study
  Country: None (occurrence: DK)
  Receive Date: 20181218
  Receipt Date: 20181218
  Transmission Date: 20190205
  Serious: Yes (Death, Hospitalization)
  Sender: FDA-Public Use
  Company Number: DK-BAUSCH-BL-2018-034614

PATIENT
  Age: 63 Year
  Sex: Female

DRUGS (3)
  1. METOPROLOL. [Suspect]
     Active Substance: METOPROLOL
     Indication: SUICIDE ATTEMPT
     Route: 065
  2. AMLODIPINE [Suspect]
     Active Substance: AMLODIPINE BESYLATE
     Indication: SUICIDE ATTEMPT
     Route: 065
  3. ENALAPRIL [Suspect]
     Active Substance: ENALAPRIL
     Indication: SUICIDE ATTEMPT
     Route: 065

REACTIONS (8)
  - Anuria [Unknown]
  - Heart rate decreased [Unknown]
  - Poisoning [Unknown]
  - Completed suicide [Unknown]
  - Cardiotoxicity [Fatal]
  - Body temperature decreased [Unknown]
  - Coma [Unknown]
  - Mean arterial pressure decreased [Unknown]
